FAERS Safety Report 13766698 (Version 1)
Quarter: 2017Q3

REPORT INFORMATION
  Report Type: Spontaneous
  Country: GB (occurrence: GB)
  Receive Date: 20170719
  Receipt Date: 20170719
  Transmission Date: 20171127
  Serious: Yes (Life-Threatening, Hospitalization)
  Sender: FDA-Public Use
  Company Number: GB-PFIZER INC-2653099

PATIENT
  Age: 85 Year
  Sex: Female

DRUGS (1)
  1. METHOTREXATE SODIUM. [Suspect]
     Active Substance: METHOTREXATE SODIUM
     Indication: RHEUMATOID ARTHRITIS
     Dosage: 5 MG, UNK
     Route: 048
     Dates: end: 20140317

REACTIONS (7)
  - Swollen tongue [Unknown]
  - White blood cell count decreased [Unknown]
  - Swelling [Unknown]
  - Neutropenia [Unknown]
  - Platelet count decreased [Unknown]
  - Respiratory tract ulceration [Unknown]
  - Tongue ulceration [Unknown]

NARRATIVE: CASE EVENT DATE: 20140314
